FAERS Safety Report 4273482-6 (Version None)
Quarter: 2004Q1

REPORT INFORMATION
  Report Type: 
  Country: None (occurrence: None)
  Receive Date: 20040114
  Receipt Date: 20040105
  Transmission Date: 20041129
  Serious: Yes (Death)
  Sender: FDA-Public Use
  Company Number: S04-USA-00020-01

PATIENT
  Age: 64 Year
  Sex: Female

DRUGS (2)
  1. MEMANTINE [Suspect]
     Indication: DEMENTIA ALZHEIMER'S TYPE
     Dates: start: 20030901, end: 20031201
  2. VITAMINS NOS [Concomitant]

REACTIONS (2)
  - HYDROCEPHALUS [None]
  - SUDDEN DEATH [None]
